FAERS Safety Report 15789583 (Version 1)
Quarter: 2019Q1

REPORT INFORMATION
  Report Type: Spontaneous
  Country: US (occurrence: US)
  Receive Date: 20190103
  Receipt Date: 20190103
  Transmission Date: 20190417
  Serious: Yes (Other)
  Sender: FDA-Public Use
  Company Number: None

PATIENT
  Age: 48 Year
  Sex: Female
  Weight: 70.65 kg

DRUGS (7)
  1. PLAQUENIL [Concomitant]
     Active Substance: HYDROXYCHLOROQUINE SULFATE
  2. STELARA [Suspect]
     Active Substance: USTEKINUMAB
     Indication: PSORIASIS
     Dosage: ?          QUANTITY:1 INJECTION(S);OTHER FREQUENCY:90 DAYS;?
     Route: 058
     Dates: start: 20161003, end: 20180912
  3. METHOTREXATE. [Concomitant]
     Active Substance: METHOTREXATE
  4. JOINT SUPPORT (NATURE^S SUNSHINE) [Concomitant]
  5. LEXAPRO [Concomitant]
     Active Substance: ESCITALOPRAM OXALATE
  6. VITAMIN B COMPLEX [Concomitant]
     Active Substance: CYANOCOBALAMIN\DEXPANTHENOL\NIACINAMIDE\PYRIDOXINE HYDROCHLORIDE\RIBOFLAVIN 5^-PHOSPHATE SODIUM\THIAMINE HYDROCHLORIDE\VITAMIN B COMPLEX
  7. CITRACAL [Concomitant]
     Active Substance: CALCIUM CITRATE

REACTIONS (8)
  - Neuralgia [None]
  - Muscular weakness [None]
  - Musculoskeletal stiffness [None]
  - Myalgia [None]
  - Neuropathy peripheral [None]
  - Central nervous system immune reconstitution inflammatory response [None]
  - Peripheral coldness [None]
  - Paraesthesia [None]

NARRATIVE: CASE EVENT DATE: 20180913
